FAERS Safety Report 8009814-2 (Version None)
Quarter: 2011Q4

REPORT INFORMATION
  Report Type: 
  Country: None (occurrence: None)
  Receive Date: 20111228
  Receipt Date: 20111227
  Transmission Date: 20120403
  Serious: No
  Sender: FDA-Public Use
  Company Number: US-BAYER-2011-123559

PATIENT
  Age: 45 Year
  Sex: Female

DRUGS (1)
  1. SAFYRAL [Suspect]
     Indication: MENORRHAGIA
     Dosage: UNK
     Route: 048
     Dates: start: 20100101

REACTIONS (3)
  - MIGRAINE [None]
  - DIZZINESS [None]
  - HYPERACUSIS [None]
